FAERS Safety Report 8814925 (Version 5)
Quarter: 2012Q4

REPORT INFORMATION
  Report Type: Report from Study
  Country: FR (occurrence: FR)
  Receive Date: 20120928
  Receipt Date: 20121220
  Transmission Date: 20130627
  Serious: Yes (Hospitalization)
  Sender: FDA-Public Use
  Company Number: FR-PFIZER INC-2012232235

PATIENT
  Age: 66 Year
  Sex: Female
  Weight: 62 kg

DRUGS (9)
  1. AXITINIB [Suspect]
     Indication: BREAST CANCER METASTATIC
     Dosage: 10 mg, 2x/day
     Dates: start: 20120821, end: 20120917
  2. AFINITOR [Suspect]
     Indication: BREAST CANCER METASTATIC
     Dosage: 10 mg, 1x/day
     Dates: start: 20120830, end: 20120917
  3. AFINITOR [Suspect]
     Dosage: For 1 month
     Dates: start: 20121004
  4. BISOPROLOL [Concomitant]
     Indication: HYPERTENSION ARTERIAL
     Dosage: 10 mg, UNK
  5. TRIATEC [Concomitant]
     Indication: HYPERTENSION ARTERIAL
     Dosage: 5 mg, 1x/day
  6. ESIDREX [Concomitant]
     Indication: HYPERTENSION ARTERIAL
     Dosage: 12.5 mg, 1x/day
  7. FLUOXETINE [Concomitant]
  8. LEVOTHYROX [Concomitant]
  9. TEMESTA [Concomitant]

REACTIONS (5)
  - Osteonecrosis of jaw [Recovering/Resolving]
  - Asthenia [Recovering/Resolving]
  - Abnormal loss of weight [Recovered/Resolved]
  - Renal failure [Recovered/Resolved]
  - Blood potassium decreased [Recovered/Resolved]
